FAERS Safety Report 9741811 (Version 5)
Quarter: 2014Q1

REPORT INFORMATION
  Report Type: Report from Study
  Country: CA (occurrence: CA)
  Receive Date: 20131210
  Receipt Date: 20140328
  Transmission Date: 20141002
  Serious: Yes (Death, Other)
  Sender: FDA-Public Use
  Company Number: PHHY2013CA078436

PATIENT
  Age: 80 Year
  Sex: Female

DRUGS (1)
  1. SANDOSTATIN LAR [Suspect]
     Indication: ANGIODYSPLASIA
     Dosage: 10 MG, QMO
     Route: 030
     Dates: start: 20130618, end: 20140226

REACTIONS (8)
  - Death [Fatal]
  - Tumour haemorrhage [Unknown]
  - Vaginal cancer metastatic [Unknown]
  - Tumour pain [Unknown]
  - Metastases to lung [Unknown]
  - Cystitis [Unknown]
  - Asthenia [Unknown]
  - Therapeutic response decreased [Unknown]
